FAERS Safety Report 6524962-1 (Version None)
Quarter: 2009Q4

REPORT INFORMATION
  Report Type: 
  Country: None (occurrence: None)
  Receive Date: 20091214
  Receipt Date: 20090703
  Transmission Date: 20100525
  Serious: Yes (Other)
  Sender: FDA-Public Use
  Company Number: 642305

PATIENT
  Age: 46 Year
  Sex: Male
  Weight: 93.9 kg

DRUGS (2)
  1. PEGASYS [Suspect]
     Indication: HEPATITIS C
     Dates: start: 20090115
  2. RIBAVIRIN [Suspect]
     Indication: HEPATITIS C
     Dates: start: 20090115

REACTIONS (13)
  - ANAEMIA [None]
  - CHEST PAIN [None]
  - MUSCLE SPASMS [None]
  - OROPHARYNGEAL PAIN [None]
  - PLATELET COUNT DECREASED [None]
  - PYREXIA [None]
  - RASH [None]
  - THYROID FUNCTION TEST ABNORMAL [None]
  - VARICOSE VEIN [None]
  - WEIGHT [None]
  - WEIGHT DECREASED [None]
  - WHEEZING [None]
  - WHITE BLOOD CELL COUNT DECREASED [None]
